FAERS Safety Report 9844870 (Version 1)
Quarter: 2014Q1

REPORT INFORMATION
  Report Type: Spontaneous
  Country: CA (occurrence: CA)
  Receive Date: 20140127
  Receipt Date: 20140127
  Transmission Date: 20141002
  Serious: Yes (Hospitalization, Other)
  Sender: FDA-Public Use
  Company Number: CA-MERCK-1401CAN010517

PATIENT
  Age: 14 Year
  Sex: Male
  Weight: 70 kg

DRUGS (13)
  1. MIRTAZAPINE [Suspect]
     Dosage: 50 MG, QD
     Route: 048
  2. ACETAMINOPHEN [Concomitant]
     Route: 065
  3. CHLORPROMAZINE [Concomitant]
     Route: 065
  4. DESMOPRESSIN [Concomitant]
     Route: 065
  5. FAMOTIDINE [Concomitant]
     Route: 065
  6. LANSOPRAZOLE [Concomitant]
     Dosage: DELAY RELEASE
     Route: 065
  7. LITHIUM [Concomitant]
     Route: 065
  8. LORAZEPAM [Concomitant]
     Route: 065
  9. MELATONIN [Concomitant]
     Route: 065
  10. OLANZAPINE [Concomitant]
     Route: 065
  11. PANTOPRAZOLE [Concomitant]
     Route: 065
  12. POLYETHYLENE GLYCOL [Concomitant]
     Route: 065
  13. PROBIOTICS (UNSPECIFIED) [Concomitant]
     Route: 065

REACTIONS (4)
  - Pancreatitis acute [Recovering/Resolving]
  - Vomiting [Recovering/Resolving]
  - Agitation [Recovering/Resolving]
  - Nausea [Recovering/Resolving]
